FAERS Safety Report 24550734 (Version 1)
Quarter: 2024Q4

REPORT INFORMATION
  Report Type: Spontaneous
  Country: US (occurrence: None)
  Receive Date: 20241025
  Receipt Date: 20241025
  Transmission Date: 20250115
  Serious: Yes (Hospitalization)
  Sender: Public
  Company Number: None

PATIENT
  Sex: Female

DRUGS (3)
  1. SKYRIZI [Suspect]
     Active Substance: RISANKIZUMAB-RZAA
     Indication: Psoriasis
     Dosage: OTHER FREQUENCY : EVERY12WEEKS;?
     Route: 042
     Dates: start: 202405
  2. ESTROGEN CREAM [Concomitant]
  3. NYSTATIN CREAM [Concomitant]

REACTIONS (3)
  - Vulvovaginal pruritus [None]
  - Vulvovaginal erythema [None]
  - Drug ineffective [None]
